FAERS Safety Report 6742782-X (Version None)
Quarter: 2010Q2

REPORT INFORMATION
  Report Type: 
  Country: None (occurrence: None)
  Receive Date: 20100525
  Receipt Date: 20100512
  Transmission Date: 20101027
  Serious: Yes (Hospitalization)
  Sender: FDA-Public Use
  Company Number: JPI-P-010700

PATIENT
  Age: 32 Year
  Sex: Female
  Weight: 71.2147 kg

DRUGS (9)
  1. XYREM [Suspect]
     Indication: DYSSOMNIA
     Dosage: 9 GM (4.5 GM 2 IN 1 D), ORAL
     Route: 048
     Dates: start: 20100405, end: 20100506
  2. MELOXICAM [Concomitant]
  3. TRAMADOL HCL [Concomitant]
  4. DULOXETINE HYDROCHLORIDE [Concomitant]
  5. VITAMIN D [Concomitant]
  6. NYSTATIN [Concomitant]
  7. VITAMIN TAB [Concomitant]
  8. HERBAL SUPPLEMENTS [Concomitant]
  9. TRIIODO-L-THYRONINE [Concomitant]

REACTIONS (4)
  - BACK PAIN [None]
  - BLOOD PRESSURE INCREASED [None]
  - CHEST PAIN [None]
  - SINUS TACHYCARDIA [None]
